FAERS Safety Report 4327739-0 (Version None)
Quarter: 2004Q1

REPORT INFORMATION
  Report Type: 
  Country: None (occurrence: None)
  Receive Date: 20040331
  Receipt Date: 20031125
  Transmission Date: 20041129
  Serious: Yes (Hospitalization, Other)
  Sender: FDA-Public Use
  Company Number: 200314497FR

PATIENT
  Age: 39 Year
  Sex: Male

DRUGS (5)
  1. ARAVA [Suspect]
     Indication: RHEUMATOID ARTHRITIS
     Route: 048
     Dates: start: 20030101, end: 20030701
  2. ACETAMINOPHEN [Suspect]
     Indication: RHEUMATOID ARTHRITIS
     Dates: end: 20031101
  3. NEXIUM [Suspect]
     Route: 048
     Dates: end: 20031101
  4. PREDNISONE [Concomitant]
     Indication: RHEUMATOID ARTHRITIS
     Route: 048
  5. MOPRAL [Concomitant]
     Route: 048

REACTIONS (4)
  - DRUG INEFFECTIVE [None]
  - HEPATIC ENZYME INCREASED [None]
  - HEPATIC TRAUMA [None]
  - LIVER FUNCTION TEST ABNORMAL [None]
